FAERS Safety Report 15369910 (Version 2)
Quarter: 2018Q3

REPORT INFORMATION
  Report Type: Spontaneous
  Country: CA (occurrence: CA)
  Receive Date: 20180911
  Receipt Date: 20180918
  Transmission Date: 20181010
  Serious: Yes (Other)
  Sender: FDA-Public Use
  Company Number: CA-CELLTRION INC.-2018CA021546

PATIENT

DRUGS (7)
  1. INFLECTRA [Suspect]
     Active Substance: INFLIXIMAB-DYYB
     Indication: CROHN^S DISEASE
     Dosage: 567 MG, CYCLIC (Q (EVERY)    2, 6 WEEKS, THEN EVERY 8   WEEKS)
     Route: 042
     Dates: start: 20180531
  2. INFLECTRA [Suspect]
     Active Substance: INFLIXIMAB-DYYB
     Dosage: 567 MG, CYCLIC (Q (EVERY)    2, 6 WEEKS, THEN EVERY 8   WEEKS)
     Route: 042
     Dates: start: 20180710
  3. PREDNISONE. [Concomitant]
     Active Substance: PREDNISONE
  4. PIPERACILLIN [Concomitant]
     Active Substance: PIPERACILLIN
  5. MORPHINE [Concomitant]
     Active Substance: MORPHINE
  6. TRAMACET [Concomitant]
     Active Substance: ACETAMINOPHEN\TRAMADOL
  7. FLAGYL [Concomitant]
     Active Substance: METRONIDAZOLE\METRONIDAZOLE HYDROCHLORIDE

REACTIONS (6)
  - Abscess [Recovered/Resolved]
  - Rash pruritic [Unknown]
  - Therapeutic response unexpected [Unknown]
  - Pre-existing condition improved [Unknown]
  - Rash [Not Recovered/Not Resolved]
  - Condition aggravated [Unknown]
